FAERS Safety Report 10267927 (Version 3)
Quarter: 2014Q3

REPORT INFORMATION
  Report Type: Report from Study
  Country: AT (occurrence: AT)
  Receive Date: 20140630
  Receipt Date: 20140731
  Transmission Date: 20150326
  Serious: Yes (Death, Hospitalization)
  Sender: FDA-Public Use
  Company Number: AT-BAYER-2014-037663

PATIENT
  Age: 75 Year
  Sex: Male

DRUGS (5)
  1. PREDNISOLON [Concomitant]
     Active Substance: PREDNISOLONE
     Dosage: 25MG, 1/2-0-0
     Dates: start: 20140401
  2. PREDNISOLON [Concomitant]
     Active Substance: PREDNISOLONE
     Dosage: UNK
     Dates: start: 20140218
  3. SINTROM [Concomitant]
     Active Substance: ACENOCOUMAROL
     Dosage: DAILY PRESCRIPTION
     Dates: end: 20140405
  4. BERODUAL [Concomitant]
     Active Substance: FENOTEROL HYDROBROMIDE\IPRATROPIUM BROMIDE
     Dosage: ^ON DEMAND^
  5. SORAFENIB (RAF KINASE INHIBITOR) [Suspect]
     Active Substance: SORAFENIB
     Indication: METASTATIC RENAL CELL CARCINOMA
     Dosage: 200 MG ^2-0-2^ (2 IN THE AM/2 IN THE PM)
     Route: 048
     Dates: start: 20131217, end: 20140404

REACTIONS (2)
  - Pulmonary tuberculosis [Fatal]
  - Pneumonia [Fatal]

NARRATIVE: CASE EVENT DATE: 20140307
